FAERS Safety Report 8839260 (Version 1)
Quarter: 2012Q4

REPORT INFORMATION
  Report Type: Report from Study
  Country: US (occurrence: US)
  Receive Date: 20121015
  Receipt Date: 20121015
  Transmission Date: 20130627
  Serious: Yes (Other)
  Sender: FDA-Public Use
  Company Number: US-JNJFOC-20121003685

PATIENT
  Sex: Female
  Weight: 69.4 kg

DRUGS (4)
  1. REMICADE [Suspect]
     Indication: CROHN^S DISEASE
     Route: 042
     Dates: start: 201206
  2. ALL OTHER THERAPEUTICS [Concomitant]
     Indication: BLOOD PRESSURE
     Route: 065
     Dates: start: 2004
  3. B 12 [Concomitant]
     Route: 065
     Dates: start: 2006
  4. WARFARIN [Concomitant]
     Indication: THROMBOSIS
     Route: 065
     Dates: start: 201206

REACTIONS (2)
  - Abscess [Recovered/Resolved]
  - Alopecia [Not Recovered/Not Resolved]
